FAERS Safety Report 7394847-X (Version None)
Quarter: 2011Q2

REPORT INFORMATION
  Report Type: 
  Country: None (occurrence: None)
  Receive Date: 20110405
  Receipt Date: 20110328
  Transmission Date: 20111010
  Serious: Yes (Congenital Anomaly)
  Sender: FDA-Public Use
  Company Number: A0905478A

PATIENT
  Sex: Male
  Weight: 4.1 kg

DRUGS (1)
  1. PAXIL [Suspect]
     Indication: DEPRESSION
     Route: 064

REACTIONS (3)
  - DRUG EXPOSURE DURING PREGNANCY [None]
  - CONGENITAL AORTIC ANOMALY [None]
  - BICUSPID AORTIC VALVE [None]
